FAERS Safety Report 6582759-0 (Version None)
Quarter: 2010Q1

REPORT INFORMATION
  Report Type: 
  Country: None (occurrence: None)
  Receive Date: 20100216
  Receipt Date: 20100203
  Transmission Date: 20100710
  Serious: Yes (Other)
  Sender: FDA-Public Use
  Company Number: JP-PFIZER INC-2010019317

PATIENT
  Age: 65 Year
  Sex: Male

DRUGS (1)
  1. ZITHROMAC SR [Suspect]
     Indication: INFECTION PROPHYLAXIS
     Dosage: 2 G/DAY
     Route: 048
     Dates: start: 20100101, end: 20100101

REACTIONS (1)
  - HYPOTHERMIA [None]
